FAERS Safety Report 5761217-7 (Version None)
Quarter: 2008Q2

REPORT INFORMATION
  Report Type: 
  Country: None (occurrence: None)
  Receive Date: 20080606
  Receipt Date: 20080528
  Transmission Date: 20081010
  Serious: Yes (Hospitalization)
  Sender: FDA-Public Use
  Company Number: PHBS2008PT04692

PATIENT
  Age: 84 Year
  Sex: Female

DRUGS (1)
  1. DICLOFENAC SODIUM [Suspect]
     Indication: CHEST INJURY
     Dosage: UNK, UNK
     Route: 065

REACTIONS (12)
  - AGRANULOCYTOSIS [None]
  - HEART RATE INCREASED [None]
  - HYPOTENSION [None]
  - LEUKOCYTOCLASTIC VASCULITIS [None]
  - MORGANELLA INFECTION [None]
  - NECROSIS [None]
  - OXYGEN SATURATION DECREASED [None]
  - PYREXIA [None]
  - RASH ERYTHEMATOUS [None]
  - SKIN LESION [None]
  - SYSTEMIC INFLAMMATORY RESPONSE SYNDROME [None]
  - VASCULITIS NECROTISING [None]
